FAERS Safety Report 9745818 (Version 1)
Quarter: 2013Q4

REPORT INFORMATION
  Report Type: Spontaneous
  Country: US (occurrence: US)
  Receive Date: 20131211
  Receipt Date: 20131211
  Transmission Date: 20140711
  Serious: Yes (Hospitalization)
  Sender: FDA-Public Use
  Company Number: US-B.I. PHARMACEUTICALS,INC./RIDGEFIELD-2013-BI-40890BP

PATIENT
  Age: 82 Year
  Sex: Male

DRUGS (11)
  1. PRADAXA [Suspect]
     Indication: ATRIAL FIBRILLATION
     Dosage: 150 MG
     Route: 048
     Dates: start: 201209, end: 20131127
  2. PRADAXA [Suspect]
     Dosage: 300 MG
     Route: 048
     Dates: start: 201103, end: 201209
  3. ALLOPURINOL [Concomitant]
     Indication: GOUT
     Dosage: 300 MG
     Route: 048
     Dates: start: 200608
  4. DIOVAN [Concomitant]
     Indication: HYPERTENSION
     Dosage: 160 MG
     Route: 048
  5. GLIMIPERIDE [Concomitant]
     Indication: TYPE 2 DIABETES MELLITUS
     Dosage: 1 MG
     Route: 048
     Dates: start: 1981
  6. TOPROL XL [Concomitant]
     Indication: HYPERTENSION
     Dosage: 25 MG
     Route: 048
  7. ALPHAGAN EYE DROPS [Concomitant]
     Indication: GLAUCOMA
     Dosage: STRENGTH: 1 DROP; DAILY DOSE: 2 DROPS
  8. LAMICTAL [Concomitant]
     Dosage: 25 MG
     Route: 048
  9. PRAVASTATIN [Concomitant]
     Indication: BLOOD CHOLESTEROL INCREASED
     Dosage: 20 MG
     Route: 048
  10. METFORMIN [Concomitant]
     Indication: TYPE 2 DIABETES MELLITUS
     Dosage: 2000 MG
     Route: 048
     Dates: start: 1981
  11. AMIODARONE [Concomitant]
     Indication: CORONARY ARTERY DISEASE
     Dosage: 200 MG
     Route: 048

REACTIONS (3)
  - Gastrointestinal haemorrhage [Recovered/Resolved]
  - Gastrointestinal haemorrhage [Not Recovered/Not Resolved]
  - Gastrointestinal haemorrhage [Recovered/Resolved]
